FAERS Safety Report 12351456 (Version 1)
Quarter: 2016Q2

REPORT INFORMATION
  Report Type: Spontaneous
  Country: US (occurrence: None)
  Receive Date: 20160509
  Receipt Date: 20160509
  Transmission Date: 20160815
  Serious: Yes (Other)
  Sender: FDA-Public Use
  Company Number: None

PATIENT
  Age: 35 Year
  Sex: Female
  Weight: 77.11 kg

DRUGS (1)
  1. ZOLPIDEM [Suspect]
     Active Substance: ZOLPIDEM\ZOLPIDEM TARTRATE
     Indication: INSOMNIA
     Dosage: 60 TABLET(S) AT BEDTIME TAKEN BY MOUTH
     Route: 048

REACTIONS (3)
  - Suspected counterfeit product [None]
  - Middle insomnia [None]
  - Abdominal pain upper [None]

NARRATIVE: CASE EVENT DATE: 20160505
